FAERS Safety Report 5228478-4 (Version None)
Quarter: 2007Q1

REPORT INFORMATION
  Report Type: 
  Country: None (occurrence: None)
  Receive Date: 20070205
  Receipt Date: 20070122
  Transmission Date: 20070707
  Serious: Yes (Hospitalization, Disabling)
  Sender: FDA-Public Use
  Company Number: GBWYE275922JAN07

PATIENT
  Age: 59 Year
  Sex: Female

DRUGS (10)
  1. ENBREL [Suspect]
     Indication: PSORIATIC ARTHROPATHY
     Route: 058
     Dates: start: 20031201, end: 20060201
  2. PREDNISOLONE [Suspect]
     Indication: PSORIATIC ARTHROPATHY
     Dosage: UNKNOWN
     Route: 048
     Dates: start: 20000801
  3. ALENDRONIC ACID [Concomitant]
     Route: 048
     Dates: start: 20010301
  4. AMITRIPTYLINE HCL [Concomitant]
     Route: 048
     Dates: start: 20030301
  5. RAMIPRIL [Concomitant]
     Route: 048
     Dates: start: 20031001
  6. ACETAMINOPHEN AND CODEINE PHOSPHATE [Concomitant]
     Dosage: AS NECESSARY
  7. LANSOPRAZOLE [Concomitant]
     Route: 048
     Dates: start: 20010301
  8. MS CONTIN [Concomitant]
     Route: 048
     Dates: start: 20010301
  9. PAROXETINE HCL [Concomitant]
     Route: 048
     Dates: start: 20010301
  10. BENDROFLUMETHIAZIDE [Concomitant]
     Route: 048
     Dates: start: 20031001

REACTIONS (3)
  - HIP ARTHROPLASTY [None]
  - POSTOPERATIVE WOUND INFECTION [None]
  - STAPHYLOCOCCAL INFECTION [None]
